FAERS Safety Report 4455773-9 (Version None)
Quarter: 2004Q3

REPORT INFORMATION
  Report Type: 
  Country: None (occurrence: None)
  Receive Date: 20040920
  Receipt Date: 20040910
  Transmission Date: 20050211
  Serious: Yes (Death)
  Sender: FDA-Public Use
  Company Number: 2001-07-0086

PATIENT
  Age: 49 Year
  Sex: Male
  Weight: 68.0396 kg

DRUGS (7)
  1. ALBUTEROL [Suspect]
     Indication: ASTHMA
     Dosage: ORAL AER INH
     Route: 055
     Dates: start: 19900511
  2. FLOVENT [Concomitant]
  3. SEREVENT [Concomitant]
  4. LIPITOR [Concomitant]
  5. GLIPIZIDE [Concomitant]
  6. ACCOLATE [Concomitant]
  7. ACCUPRIL [Concomitant]

REACTIONS (20)
  - ABDOMINAL DISTENSION [None]
  - AORTIC ATHEROSCLEROSIS [None]
  - ASPIRATION [None]
  - ASTHMA [None]
  - CARDIO-RESPIRATORY ARREST [None]
  - CIRCULATORY COLLAPSE [None]
  - CORONARY ARTERY DISEASE [None]
  - CYANOSIS [None]
  - DIABETES MELLITUS [None]
  - DYSPNOEA [None]
  - ELECTROMECHANICAL DISSOCIATION [None]
  - GENERAL PHYSICAL HEALTH DETERIORATION [None]
  - HAEMORRHAGE [None]
  - HYPERTENSION [None]
  - JUGULAR VEIN DISTENSION [None]
  - MYDRIASIS [None]
  - PLEURAL FIBROSIS [None]
  - PUPILLARY REFLEX IMPAIRED [None]
  - THERAPY NON-RESPONDER [None]
  - VENTRICULAR FIBRILLATION [None]
